FAERS Safety Report 9878462 (Version 1)
Quarter: 2014Q1

REPORT INFORMATION
  Report Type: Spontaneous
  Country: US (occurrence: US)
  Receive Date: 20140206
  Receipt Date: 20140206
  Transmission Date: 20141002
  Serious: No
  Sender: FDA-Public Use
  Company Number: US-ALLERGAN-1312178US

PATIENT
  Age: 67 Year
  Sex: Female

DRUGS (6)
  1. BOTOX [Suspect]
     Indication: TORTICOLLIS
     Dosage: UNK
     Route: 030
     Dates: start: 20130805, end: 20130805
  2. BOTOX [Suspect]
     Dosage: UNK
     Route: 030
  3. BOTOX [Suspect]
     Dosage: UNK
     Route: 030
  4. SPIRIVA [Concomitant]
     Indication: EMPHYSEMA
     Route: 055
  5. KLONOPIN [Concomitant]
     Indication: ANXIETY
  6. LEXAPRO [Concomitant]
     Indication: DEPRESSION

REACTIONS (6)
  - Micturition urgency [Unknown]
  - Bladder discomfort [Unknown]
  - Bladder pain [Unknown]
  - Cough [Unknown]
  - Eyelid ptosis [Unknown]
  - Dysphagia [Unknown]
